FAERS Safety Report 8248440-7 (Version None)
Quarter: 2012Q1

REPORT INFORMATION
  Report Type: 
  Country: None (occurrence: None)
  Receive Date: 20120330
  Receipt Date: 20120322
  Transmission Date: 20120608
  Serious: Yes (Hospitalization)
  Sender: FDA-Public Use
  Company Number: US-ELI_LILLY_AND_COMPANY-US201202003271

PATIENT
  Age: 73 Year
  Sex: Female

DRUGS (27)
  1. FORTEO [Suspect]
     Indication: OSTEOPOROSIS
     Dosage: 20 UG, QD
     Route: 058
     Dates: start: 20111004
  2. CYCLOPHOSPHAMIDE [Concomitant]
     Dosage: 50 MG, QD
     Dates: start: 20111004
  3. LIPITOR [Concomitant]
     Dosage: 40 MG, QD
     Dates: start: 20110912
  4. NORVASC [Concomitant]
     Dosage: 10 MG, QD
     Dates: start: 20110912
  5. LORTAB [Concomitant]
     Dosage: 1 DF, PRN
     Dates: start: 20110912
  6. FENOFIBRATE [Concomitant]
     Dosage: 160 MG, QD
     Dates: start: 20110912
  7. KLOR-CON [Concomitant]
  8. TUMS                               /00751519/ [Concomitant]
     Dosage: 1 DF, QD
     Dates: start: 20110912
  9. ACETAMINOPHEN AND HYDROCODONE BITARTRATE [Concomitant]
  10. FUROSEMIDE [Concomitant]
  11. NIASPAN [Concomitant]
     Dosage: 1 DF, QD
     Dates: start: 20110912
  12. ASPIRIN [Concomitant]
     Dosage: UNK, QD
  13. RESTORIL [Concomitant]
     Dosage: 1 DF, QD
     Dates: start: 20110912
  14. FERROUS SULFATE TAB [Concomitant]
     Dosage: 1 DF, TID
     Dates: start: 20110912
  15. LEVOTHYROXINE SODIUM [Concomitant]
  16. MIRALAX [Concomitant]
     Dosage: 17 G, QD
     Dates: start: 20110912
  17. AMLODIPINE BESYLATE [Concomitant]
  18. SKELAXIN [Concomitant]
     Dosage: 1 DF, TID
     Dates: start: 20110912
  19. NEOMYCIN SULFATE TAB [Concomitant]
     Dosage: UNK, PRN
     Dates: start: 20110912
  20. PREDNISONE TAB [Concomitant]
     Dosage: 20 MG, UNKNOWN
     Dates: start: 20110912
  21. SYNTHROID [Concomitant]
     Dosage: 150 UG, QD
     Dates: start: 20110912
  22. PANTOPRAZOLE [Concomitant]
     Dosage: 40 MG, QD
     Dates: start: 20110912
  23. LISINOPRIL [Concomitant]
  24. VITAMIN D [Concomitant]
     Dosage: 200 IU, QD
     Dates: start: 20111004
  25. CALTRATE                           /00751519/ [Concomitant]
  26. POTASSIUM CHLORIDE [Concomitant]
     Dosage: 20 MEQ, QD
     Dates: start: 20110912
  27. COLACE [Concomitant]
     Dosage: 1 DF, BID
     Dates: start: 20110912

REACTIONS (2)
  - DRUG DOSE OMISSION [None]
  - SPINAL COMPRESSION FRACTURE [None]
